FAERS Safety Report 16745707 (Version 1)
Quarter: 2019Q3

REPORT INFORMATION
  Report Type: Report from Study
  Country: ES (occurrence: ES)
  Receive Date: 20190827
  Receipt Date: 20190827
  Transmission Date: 20191005
  Serious: Yes (Hospitalization)
  Sender: FDA-Public Use
  Company Number: ES-MYLANLABS-2019M1079366

PATIENT
  Age: 61 Year
  Sex: Female
  Weight: 58.6 kg

DRUGS (6)
  1. CIPROFLOXACINO                     /00697201/ [Concomitant]
     Active Substance: CIPROFLOXACIN
     Indication: MUCOSAL INFLAMMATION
     Dosage: 500 MILLIGRAM
     Route: 048
     Dates: start: 20161027, end: 20161102
  2. ONDASETRON                         /00955301/ [Concomitant]
     Active Substance: ONDANSETRON
     Indication: PROPHYLAXIS
     Dosage: UNK
     Route: 048
     Dates: start: 20161221
  3. LIDOCAINA                          /00033401/ [Concomitant]
     Indication: MUCOSAL INFLAMMATION
     Dosage: UNK
     Route: 048
     Dates: start: 20161027, end: 20161102
  4. FLUCONAZOL [Concomitant]
     Active Substance: FLUCONAZOLE
     Indication: MUCOSAL INFLAMMATION
     Dosage: 200 MILLIGRAM
     Route: 048
     Dates: start: 20161027, end: 20161102
  5. BEVACIZUMAB. [Suspect]
     Active Substance: BEVACIZUMAB
     Indication: BREAST CANCER
     Dosage: 10 MILLIGRAM/SQ. METER, 3XW (FORM STRENGTH: 25 MG/ML)
     Route: 042
     Dates: start: 20161019
  6. PACLITAXEL. [Suspect]
     Active Substance: PACLITAXEL
     Indication: BREAST CANCER
     Dosage: 80 MILLIGRAM/SQ. METER, QW (FORM STRENGTH : 6 MG/ML)
     Route: 042
     Dates: start: 20161020

REACTIONS (9)
  - Epistaxis [Recovered/Resolved]
  - Alanine aminotransferase increased [Unknown]
  - Neutrophil count decreased [Recovered/Resolved]
  - Aspartate aminotransferase increased [Unknown]
  - Mucosal inflammation [Recovered/Resolved]
  - Dyspnoea [Recovered/Resolved]
  - Nodule [Recovered/Resolved]
  - Odynophagia [Recovered/Resolved]
  - Neutropenia [Recovered/Resolved]

NARRATIVE: CASE EVENT DATE: 20161019
